FAERS Safety Report 7369442-9 (Version None)
Quarter: 2011Q1

REPORT INFORMATION
  Report Type: 
  Country: None (occurrence: None)
  Receive Date: 20110323
  Receipt Date: 20091122
  Transmission Date: 20110831
  Serious: Yes (Death, Other)
  Sender: FDA-Public Use
  Company Number: US-BAYER-200939880NA

PATIENT
  Sex: Female
  Weight: 81.633 kg

DRUGS (34)
  1. PRINIVIL [Concomitant]
     Dosage: 2.5 MG, QD
     Route: 048
     Dates: end: 20031021
  2. PREDNISONE [Concomitant]
     Dosage: 10 MG, QD
     Route: 048
     Dates: end: 20031021
  3. LASIX [Concomitant]
     Dosage: 60 MG TWICE DAILY
     Dates: end: 20031021
  4. SODIUM BICARBONATE [Concomitant]
     Dosage: UNK
     Route: 042
     Dates: end: 20031021
  5. ACETYLSALICYLIC ACID SRT [Concomitant]
     Dosage: 1 TABLET, QD
     Route: 048
     Dates: end: 20031021
  6. TRICOR [Concomitant]
     Dosage: 54 MG, QD
     Route: 048
     Dates: end: 20031021
  7. DOPAMINE [Concomitant]
     Dosage: UNK
     Route: 042
     Dates: start: 20031021
  8. SOLU-MEDROL [Concomitant]
     Dosage: UNK
     Route: 042
     Dates: end: 20031021
  9. PROTAMINE SULFATE [Concomitant]
     Dosage: 100 MG, UNK
     Route: 042
     Dates: start: 20031021
  10. ZANTAC [Concomitant]
     Dosage: UNK
     Route: 042
     Dates: start: 20031021
  11. TRASYLOL [Suspect]
     Indication: CORONARY ARTERY BYPASS
     Route: 042
     Dates: start: 20031021
  12. SYNTHROID [Concomitant]
     Dosage: 0.88 MCG/24HR, UNK
     Route: 048
     Dates: end: 20031021
  13. ANCEF [Concomitant]
     Dosage: 1 G,Q12H
     Route: 042
     Dates: start: 20031021
  14. HEPARIN [Concomitant]
     Dosage: 5000 U, UNK
     Dates: start: 20031021
  15. LEVOPHED [Concomitant]
     Dosage: UNK
     Route: 042
     Dates: start: 20031021
  16. PROPOFOL [Concomitant]
     Dosage: UNK
     Route: 042
     Dates: start: 20031021
  17. FOLTX [Concomitant]
     Dosage: 1 TABLET, QD
     Route: 048
     Dates: end: 20031021
  18. FENTANYL [Concomitant]
     Dosage: UNK
     Route: 042
     Dates: start: 20031021
  19. VERSED [Concomitant]
     Dosage: UNK
     Route: 042
     Dates: start: 20031021
  20. AMICAR [Concomitant]
     Dosage: UNK
     Route: 042
     Dates: start: 20031021
  21. MANNITOL [Concomitant]
     Dosage: UNK
     Route: 042
     Dates: start: 20031021
  22. LIDOCAINE [Concomitant]
     Dosage: UNK
     Route: 042
     Dates: start: 20031021
  23. LASIX [Concomitant]
     Dosage: 80 MG, QD
     Route: 048
     Dates: end: 20031021
  24. EPINEPHRINE [Concomitant]
     Dosage: UNK
     Route: 042
     Dates: start: 20031021
  25. BENADRYL [Concomitant]
     Dosage: UNK
     Route: 042
     Dates: start: 20031021
  26. TRASYLOL [Suspect]
     Indication: AORTIC VALVE REPAIR
  27. ZESTRIL [Concomitant]
     Dosage: 20 MG, QD
     Route: 048
     Dates: end: 20031021
  28. LASIX [Concomitant]
     Dosage: UNK
     Route: 042
     Dates: start: 20031021
  29. TRASYLOL [Suspect]
     Indication: MITRAL VALVE REPAIR
  30. CEFAZOLIN [Concomitant]
     Dosage: 1 G, UNK
     Route: 042
     Dates: start: 20031014
  31. CALCIUM CHLORIDE [Concomitant]
     Dosage: 1 G, UNK
     Route: 042
     Dates: start: 20031021
  32. CARDIOPLEGIA [Concomitant]
     Dosage: CARIOPULMONARY BYPASS
     Dates: start: 20031021
  33. NITROGLYCERIN [Concomitant]
     Dosage: UNK
     Route: 042
     Dates: start: 20031021
  34. MAGNESIUM [Concomitant]
     Dosage: UNK
     Route: 042
     Dates: end: 20031021

REACTIONS (13)
  - STRESS [None]
  - ANXIETY [None]
  - MULTI-ORGAN FAILURE [None]
  - UNEVALUABLE EVENT [None]
  - DEATH [None]
  - RENAL FAILURE [None]
  - RENAL IMPAIRMENT [None]
  - RENAL INJURY [None]
  - EMOTIONAL DISTRESS [None]
  - FEAR [None]
  - PAIN [None]
  - ANHEDONIA [None]
  - INJURY [None]
